FAERS Safety Report 4489486-4 (Version None)
Quarter: 2004Q4

REPORT INFORMATION
  Report Type: 
  Country: None (occurrence: None)
  Receive Date: 20041101
  Receipt Date: 20041026
  Transmission Date: 20050328
  Serious: Yes (Hospitalization)
  Sender: FDA-Public Use
  Company Number: PHEH2004US11565

PATIENT
  Age: 64 Year
  Sex: Female

DRUGS (1)
  1. CLOZARIL [Suspect]
     Dosage: UNK,UNK
     Dates: start: 19910611, end: 20041021

REACTIONS (3)
  - AGRANULOCYTOSIS [None]
  - CARCINOMA [None]
  - LEUKOPENIA [None]
